FAERS Safety Report 5928398-3 (Version None)
Quarter: 2008Q4

REPORT INFORMATION
  Report Type: 
  Country: None (occurrence: None)
  Receive Date: 20081023
  Receipt Date: 20081013
  Transmission Date: 20090506
  Serious: Yes (Other)
  Sender: FDA-Public Use
  Company Number: US-PFIZER INC-2008085958

PATIENT
  Sex: Male
  Weight: 79.4 kg

DRUGS (4)
  1. ZOLOFT [Suspect]
     Indication: SLEEP DISORDER
     Dates: start: 19930101
  2. CELEBREX [Suspect]
  3. ELAVIL [Concomitant]
  4. PAXIL [Concomitant]

REACTIONS (5)
  - ABDOMINAL PAIN [None]
  - BLINDNESS [None]
  - FEELING ABNORMAL [None]
  - HYPERHIDROSIS [None]
  - VOMITING [None]
